FAERS Safety Report 5654459-2 (Version None)
Quarter: 2008Q1

REPORT INFORMATION
  Report Type: 
  Country: None (occurrence: None)
  Receive Date: 20080305
  Receipt Date: 20080221
  Transmission Date: 20080703
  Serious: Yes (Other)
  Sender: FDA-Public Use
  Company Number: 07-002437

PATIENT
  Age: 37 Year
  Sex: Female
  Weight: 67.1 kg

DRUGS (4)
  1. FEMCON FE [Suspect]
     Dosage: 0.4 MG/35MCG, QD, ORAL
     Route: 048
  2. EFFEXOR [Concomitant]
  3. FAMVIR [Concomitant]
  4. ALLEGRA [Concomitant]

REACTIONS (4)
  - ABORTION INDUCED [None]
  - DRUG EXPOSURE DURING PREGNANCY [None]
  - DRUG INEFFECTIVE [None]
  - PREGNANCY ON ORAL CONTRACEPTIVE [None]
